FAERS Safety Report 7807362-3 (Version None)
Quarter: 2011Q4

REPORT INFORMATION
  Report Type: 
  Country: None (occurrence: None)
  Receive Date: 20111011
  Receipt Date: 20111007
  Transmission Date: 20120403
  Serious: No
  Sender: FDA-Public Use
  Company Number: US-B.I. PHARMACEUTICALS,INC./RIDGEFIELD-2011-BP-23811BP

PATIENT
  Sex: Male

DRUGS (5)
  1. LOPERAMIDE HCL [Concomitant]
     Indication: DIARRHOEA
     Dosage: 4 MG
     Route: 048
     Dates: start: 20050101
  2. PRADAXA [Suspect]
     Indication: ATRIAL FIBRILLATION
     Dosage: 300 MG
     Route: 048
     Dates: start: 20101101
  3. LISINOPRIL [Concomitant]
     Indication: HYPERTENSION
     Dosage: 10 MG
     Route: 048
     Dates: start: 20080101
  4. ICAP [Concomitant]
     Indication: CATARACT
     Route: 048
     Dates: start: 20060101
  5. CARVEDILOL [Concomitant]
     Indication: HYPERTENSION
     Dosage: 25 MG
     Route: 048
     Dates: start: 20080101

REACTIONS (1)
  - ATRIAL FIBRILLATION [None]
